FAERS Safety Report 7878868-6 (Version None)
Quarter: 2011Q4

REPORT INFORMATION
  Report Type: 
  Country: None (occurrence: None)
  Receive Date: 20111024
  Receipt Date: 20110711
  Transmission Date: 20120403
  Serious: Yes (Hospitalization)
  Sender: FDA-Public Use
  Company Number: AMAG201100154

PATIENT
  Sex: Female

DRUGS (2)
  1. FERAHEME [Suspect]
     Indication: IRON DEFICIENCY ANAEMIA
     Dosage: 510 MG, SINGLE, INTRAVENOUS
     Route: 042
     Dates: start: 20110623, end: 20110623
  2. FERAHEME [Suspect]
     Indication: SERUM FERRITIN DECREASED
     Dosage: 510 MG, SINGLE, INTRAVENOUS
     Route: 042
     Dates: start: 20110623, end: 20110623

REACTIONS (2)
  - CHEST PAIN [None]
  - CARDIAC MURMUR [None]
